FAERS Safety Report 8121627-X (Version None)
Quarter: 2012Q1

REPORT INFORMATION
  Report Type: 
  Country: None (occurrence: None)
  Receive Date: 20120208
  Receipt Date: 20120208
  Transmission Date: 20120608
  Serious: Yes (Life-Threatening, Hospitalization)
  Sender: FDA-Public Use
  Company Number: None

PATIENT
  Age: 62 Year
  Sex: Male
  Weight: 77.11 kg

DRUGS (1)
  1. CHAR-CAPS ACTIVATED CHARCOAL [Suspect]
     Indication: CHEMOTHERAPY
     Dosage: 4 CAPSULES ORAL
     Dates: start: 20110314, end: 20110315

REACTIONS (5)
  - INTESTINAL OBSTRUCTION [None]
  - MEDICAL DEVICE COMPLICATION [None]
  - RENAL FAILURE [None]
  - CONSTIPATION [None]
  - GASTROINTESTINAL DISORDER [None]
